FAERS Safety Report 7589648-3 (Version None)
Quarter: 2011Q3

REPORT INFORMATION
  Report Type: 
  Country: None (occurrence: None)
  Receive Date: 20110705
  Receipt Date: 20110624
  Transmission Date: 20111222
  Serious: Yes (Hospitalization)
  Sender: FDA-Public Use
  Company Number: GR-JNJFOC-20110605584

PATIENT
  Sex: Male
  Weight: 62 kg

DRUGS (6)
  1. ABIRATERONE ACETATE [Suspect]
     Route: 048
     Dates: start: 20110610, end: 20110616
  2. PREDNISOLONE [Suspect]
     Indication: PROSTATE CANCER METASTATIC
     Route: 048
     Dates: start: 20110608
  3. ABIRATERONE ACETATE [Suspect]
     Indication: PROSTATE CANCER METASTATIC
     Route: 048
  4. FENTANYL [Concomitant]
     Indication: PAIN
     Dosage: DOSE:50
     Route: 062
     Dates: start: 20110207
  5. GLUCOPHAGE [Concomitant]
     Indication: TYPE 2 DIABETES MELLITUS
     Dosage: DOSE:850
     Route: 048
     Dates: start: 20110125
  6. SOLOSA [Concomitant]
     Indication: DIABETES MELLITUS
     Route: 048
     Dates: start: 20110125

REACTIONS (2)
  - ANAEMIA [None]
  - URINARY TRACT INFECTION [None]
